FAERS Safety Report 7557488-7 (Version None)
Quarter: 2011Q2

REPORT INFORMATION
  Report Type: 
  Country: None (occurrence: None)
  Receive Date: 20110620
  Receipt Date: 20110615
  Transmission Date: 20111010
  Serious: Yes (Other)
  Sender: FDA-Public Use
  Company Number: CA-PFIZER INC-2011124966

PATIENT
  Age: 68 Year
  Sex: Female

DRUGS (8)
  1. OXYCONTIN [Concomitant]
     Dosage: UNK
  2. MICARDIS [Concomitant]
     Dosage: UNK
  3. DOMPERIDONE [Concomitant]
     Dosage: 10 MG, 3X/DAY
  4. NORVASC [Concomitant]
     Dosage: UNK
  5. CYMBALTA [Concomitant]
     Indication: FIBROMYALGIA
     Dosage: 60 MG, 1X/DAY
  6. LYRICA [Suspect]
     Indication: PAIN
     Dosage: 75 MG, 2X/DAY
     Dates: start: 20110101
  7. TYLENOL-500 [Concomitant]
     Dosage: UNK
  8. HYDROXYCHLOROQUINE [Concomitant]
     Indication: ARTHRITIS
     Dosage: 200 MG, 2X/DAY

REACTIONS (3)
  - VISION BLURRED [None]
  - SLEEP APNOEA SYNDROME [None]
  - EYE SWELLING [None]
